FAERS Safety Report 8899833 (Version 1)
Quarter: 2012Q4

REPORT INFORMATION
  Report Type: 
  Country: US (occurrence: US)
  Receive Date: 20121109
  Receipt Date: 20121109
  Transmission Date: 20130627
  Serious: Yes (Other)
  Sender: FDA-Public Use
  Company Number: PHEH2012US011898

PATIENT
  Age: 84 Year
  Sex: Male

DRUGS (2)
  1. GLEEVEC [Suspect]
     Indication: SMALL INTESTINE CARCINOMA
     Dosage: 400 mg, daily
     Route: 048
     Dates: start: 20110901
  2. GLEEVEC [Suspect]
     Dosage: 400 mg, daily
     Route: 048
     Dates: start: 20120508

REACTIONS (5)
  - Abdominal neoplasm [Unknown]
  - Second primary malignancy [Unknown]
  - Eye swelling [Unknown]
  - Eye haemorrhage [Recovered/Resolved]
  - Musculoskeletal stiffness [Recovered/Resolved]
